FAERS Safety Report 18314131 (Version 11)
Quarter: 2023Q2

REPORT INFORMATION
  Report Type: Report from Study
  Country: US (occurrence: US)
  Receive Date: 20200926
  Receipt Date: 20230623
  Transmission Date: 20230721
  Serious: Yes (Other)
  Sender: FDA-Public Use
  Company Number: US-NOVARTISPH-NVSC2020US259974

PATIENT
  Age: 41 Year
  Sex: Female
  Weight: 68.027 kg

DRUGS (10)
  1. TREPROSTINIL [Suspect]
     Active Substance: TREPROSTINIL
     Indication: Pulmonary arterial hypertension
     Dosage: UNK, CONT ((147 NG/KG, CONT) (STRENGTH 10MG/ML))
     Route: 042
     Dates: start: 20190410
  2. TREPROSTINIL [Suspect]
     Active Substance: TREPROSTINIL
     Dosage: UNK, CONT (151 NG/KG/MIN (STRENGTH 5MG/ML))
     Route: 042
  3. TREPROSTINIL [Suspect]
     Active Substance: TREPROSTINIL
     Dosage: UNK, CONT (151 NG/KG/MIN)
     Route: 042
  4. TREPROSTINIL [Suspect]
     Active Substance: TREPROSTINIL
     Dosage: UNK UNK, CONT ((151 NG/KG/MIN)(STRENGTH : 5MG/ML))
     Route: 042
  5. TREPROSTINIL [Suspect]
     Active Substance: TREPROSTINIL
     Dosage: UNK UNK, CONT (151 NG/KG/MIN)(1MG/ML))
     Route: 042
  6. TREPROSTINIL [Suspect]
     Active Substance: TREPROSTINIL
     Dosage: UNK UNK, CONT (151 NG/KG/MIN)(1MG/ML))
     Route: 042
  7. TREPROSTINIL [Suspect]
     Active Substance: TREPROSTINIL
     Dosage: UNK, CONT (151 NG/KG/MIN(1 MG/ML))
     Route: 042
  8. TREPROSTINIL [Suspect]
     Active Substance: TREPROSTINIL
     Dosage: UNK, CONT (STRENGTH: 1MG/ML, 155 NG/KG/M I N, FREQUENCY: CONTINUOUS)
     Route: 042
  9. TREPROSTINIL [Suspect]
     Active Substance: TREPROSTINIL
     Dosage: UNK, CONT (STRENGTH: 1MG/ML, 111 NG/KG/M I N, FREQUENCY: CONTINUOUS)
     Route: 042
  10. OPSUMIT [Concomitant]
     Active Substance: MACITENTAN
     Indication: Product used for unknown indication
     Dosage: UNK
     Route: 065

REACTIONS (15)
  - Autoimmune disorder [Unknown]
  - Hypersensitivity [Not Recovered/Not Resolved]
  - Constipation [Unknown]
  - Migraine [Unknown]
  - Sinus disorder [Unknown]
  - Cough [Unknown]
  - Seasonal allergy [Not Recovered/Not Resolved]
  - Musculoskeletal discomfort [Unknown]
  - Arthralgia [Unknown]
  - Mycotic allergy [Unknown]
  - Swelling face [Unknown]
  - Eye swelling [Unknown]
  - Arthropod bite [Unknown]
  - Arthritis [Unknown]
  - Peripheral swelling [Unknown]

NARRATIVE: CASE EVENT DATE: 20230507
